FAERS Safety Report 12145762 (Version 1)
Quarter: 2016Q1

REPORT INFORMATION
  Report Type: Spontaneous
  Country: CA (occurrence: CA)
  Receive Date: 20160304
  Receipt Date: 20160304
  Transmission Date: 20160526
  Serious: Yes (Other)
  Sender: FDA-Public Use
  Company Number: CA-PFIZER INC-2016133768

PATIENT
  Sex: Female

DRUGS (1)
  1. ADVIL PEDIATRIC DROPS [Suspect]
     Active Substance: IBUPROFEN
     Dosage: UNK
     Dates: start: 20160128, end: 20160128

REACTIONS (5)
  - Drug administration error [Unknown]
  - Poor quality drug administered [Unknown]
  - Product quality issue [Unknown]
  - Febrile convulsion [Unknown]
  - Respiratory arrest [Unknown]

NARRATIVE: CASE EVENT DATE: 20160128
